FAERS Safety Report 10648821 (Version 1)
Quarter: 2014Q4

REPORT INFORMATION
  Report Type: Spontaneous
  Country: TR (occurrence: TR)
  Receive Date: 20141212
  Receipt Date: 20141212
  Transmission Date: 20150529
  Serious: Yes (Hospitalization)
  Sender: FDA-Public Use
  Company Number: TR-NOVOPROD-431794

PATIENT
  Age: 61 Year
  Sex: Female
  Weight: 100 kg

DRUGS (2)
  1. LEVEMIR [Suspect]
     Active Substance: INSULIN DETEMIR
     Indication: DIABETES MELLITUS
     Dosage: 34 U, QD
     Route: 058
     Dates: start: 2007
  2. ACTRAPID [Suspect]
     Active Substance: INSULIN HUMAN
     Indication: DIABETES MELLITUS
     Dosage: 34 IU, TID
     Route: 058
     Dates: start: 2007

REACTIONS (1)
  - Chronic obstructive pulmonary disease [Recovered/Resolved]
